FAERS Safety Report 5167119-1 (Version None)
Quarter: 2006Q4

REPORT INFORMATION
  Report Type: 
  Country: None (occurrence: None)
  Receive Date: 20061207
  Receipt Date: 20061130
  Transmission Date: 20070319
  Serious: Yes (Other)
  Sender: FDA-Public Use
  Company Number: CH-GLAXOSMITHKLINE-B0449426A

PATIENT
  Sex: Male
  Weight: 1.5 kg

DRUGS (6)
  1. ZOFRAN [Suspect]
     Indication: NEOPLASM MALIGNANT
     Dates: start: 20060215, end: 20060426
  2. HOLOXAN [Suspect]
     Indication: NEOPLASM MALIGNANT
     Dates: start: 20060215, end: 20060425
  3. ADRIBLASTIN [Suspect]
     Indication: NEOPLASM MALIGNANT
     Dates: start: 20060215, end: 20060421
  4. NEUPOGEN [Suspect]
     Indication: NEOPLASM MALIGNANT
     Dates: start: 20060222, end: 20060505
  5. MESNA [Suspect]
     Indication: NEOPLASM MALIGNANT
     Dates: start: 20060215, end: 20060426
  6. SOLU-MEDROL [Suspect]
     Indication: NEOPLASM MALIGNANT
     Dates: start: 20060215, end: 20060425

REACTIONS (2)
  - DRUG EXPOSURE DURING PREGNANCY [None]
  - FOETAL GROWTH RETARDATION [None]
